APPROVED DRUG PRODUCT: HEPSERA
Active Ingredient: ADEFOVIR DIPIVOXIL
Strength: 10MG **Federal Register determination that product was not discontinued or withdrawn for safety or effectiveness reasons**
Dosage Form/Route: TABLET;ORAL
Application: N021449 | Product #001
Applicant: GILEAD SCIENCES INC
Approved: Sep 20, 2002 | RLD: Yes | RS: No | Type: DISCN